FAERS Safety Report 23649605 (Version 1)
Quarter: 2024Q1

REPORT INFORMATION
  Report Type: Spontaneous
  Country: US (occurrence: US)
  Receive Date: 20240319
  Receipt Date: 20240319
  Transmission Date: 20240409
  Serious: Yes (Other)
  Sender: FDA-Public Use
  Company Number: US-GILEAD-2024-0666250

PATIENT
  Sex: Female

DRUGS (1)
  1. YESCARTA [Suspect]
     Active Substance: AXICABTAGENE CILOLEUCEL
     Indication: Diffuse large B-cell lymphoma
     Dosage: UNK (INFUSION) (2ND LINE)
     Route: 065
     Dates: start: 20240220, end: 20240220

REACTIONS (1)
  - Cognitive disorder [Unknown]
